FAERS Safety Report 16957677 (Version 1)
Quarter: 2019Q4

REPORT INFORMATION
  Report Type: Spontaneous
  Country: US (occurrence: US)
  Receive Date: 20191024
  Receipt Date: 20191024
  Transmission Date: 20200122
  Serious: No
  Sender: FDA-Public Use
  Company Number: US-BRISTOL-MYERS SQUIBB COMPANY-BMS-2019-102461

PATIENT
  Sex: Male
  Weight: 122.47 kg

DRUGS (3)
  1. TRAMADOL. [Suspect]
     Active Substance: TRAMADOL
     Indication: PAIN
     Route: 065
  2. ELIQUIS [Suspect]
     Active Substance: APIXABAN
     Indication: DEEP VEIN THROMBOSIS
     Dosage: 10 MILLIGRAM, BID
     Route: 048
     Dates: start: 20191017
  3. ELIQUIS [Suspect]
     Active Substance: APIXABAN
     Indication: PRODUCT USED FOR UNKNOWN INDICATION
     Dosage: TOOK THEIR MORNING DOSE OF ELIQUIS ABOUT SIX HOURS TOO EARLY
     Route: 065

REACTIONS (2)
  - Inappropriate schedule of product administration [Unknown]
  - Pruritus [Unknown]
